FAERS Safety Report 15533949 (Version 3)
Quarter: 2018Q4

REPORT INFORMATION
  Report Type: Report from Study
  Country: US (occurrence: US)
  Receive Date: 20181019
  Receipt Date: 20181212
  Transmission Date: 20190205
  Serious: Yes (Hospitalization, Other)
  Sender: FDA-Public Use
  Company Number: US-BAYER-2018-185158

PATIENT
  Age: 60 Year
  Sex: Female

DRUGS (2)
  1. STIVARGA [Suspect]
     Active Substance: REGORAFENIB
     Indication: HEPATOCELLULAR CARCINOMA
     Dosage: DAILY DOSE 40 MG
     Route: 048
     Dates: start: 20181023, end: 20181123
  2. STIVARGA [Suspect]
     Active Substance: REGORAFENIB
     Indication: HEPATOCELLULAR CARCINOMA
     Dosage: 120 MG DAILY(IN MORNING WITH LOW FAT BREAKFAST FOR 21 DAY AND STOP 7 DAYS)
     Route: 048
     Dates: start: 20180928, end: 20181019

REACTIONS (11)
  - Pain [None]
  - Fatigue [None]
  - Chills [None]
  - Nausea [Recovering/Resolving]
  - Dysphonia [None]
  - Hepatocellular carcinoma [None]
  - Dry skin [None]
  - Skin exfoliation [None]
  - Off label use [None]
  - Pyrexia [None]
  - Dry mouth [None]

NARRATIVE: CASE EVENT DATE: 2018
